FAERS Safety Report 8337052-2 (Version None)
Quarter: 2012Q2

REPORT INFORMATION
  Report Type: 
  Country: None (occurrence: None)
  Receive Date: 20120501
  Receipt Date: 20120416
  Transmission Date: 20120825
  Serious: Yes (Hospitalization, Other)
  Sender: FDA-Public Use
  Company Number: 2012P1017086

PATIENT
  Age: 55 Year
  Sex: Female

DRUGS (7)
  1. DEXAMETHASONE SODIUM PHOSPHATE [Suspect]
     Indication: PREMEDICATION
     Dosage: 20 MG; CYCLIC; IV
     Route: 042
     Dates: start: 20120216, end: 20120216
  2. CARBOPLATIN [Suspect]
     Indication: TONSIL CANCER
     Dosage: CYCLIC; IV
     Route: 042
     Dates: start: 20120209, end: 20120209
  3. RANITIDINE HYDROCHLORIDE [Suspect]
     Indication: PREMEDICATION
     Dosage: 50 MG; CYCLIC; IV
     Route: 042
     Dates: start: 20120216, end: 20120216
  4. CETUXIMAB INJECTION (NO PREF. NAME) [Suspect]
     Indication: TONSIL CANCER
     Dosage: 250 MG/M^2; CYCLIC; IV
     Route: 042
     Dates: start: 20120216, end: 20120216
  5. DEXCHLORPHENIRAMINE MALEATE [Suspect]
     Indication: PREMEDICATION
     Dosage: 5 MG; CYCLIC; IV
     Route: 042
     Dates: start: 20120216, end: 20120216
  6. ACETAMINOPHEN [Concomitant]
  7. ONDANSETRON HYDROCHLORIDE [Suspect]
     Dosage: 8 MG; CYCLIC; IV
     Route: 042
     Dates: start: 20120209, end: 20120209

REACTIONS (2)
  - GASTRIC ULCER HAEMORRHAGE [None]
  - ANAEMIA [None]
